FAERS Safety Report 7302026-7 (Version None)
Quarter: 2011Q1

REPORT INFORMATION
  Report Type: 
  Country: None (occurrence: None)
  Receive Date: 20110218
  Receipt Date: 20110215
  Transmission Date: 20110831
  Serious: Yes (Hospitalization)
  Sender: FDA-Public Use
  Company Number: US-PFIZER INC-2011033700

PATIENT
  Sex: Female

DRUGS (6)
  1. LEVODOPA [Concomitant]
     Indication: PARKINSON'S DISEASE
     Dosage: UNK
  2. ALBUTEROL [Concomitant]
     Dosage: UNK
  3. MIRAPEX [Concomitant]
     Dosage: UNK
  4. LYRICA [Suspect]
     Indication: NEUROPATHY PERIPHERAL
     Dosage: 150 MG, 2X/DAY
     Route: 048
  5. ACETYLSALICYLIC ACID [Concomitant]
     Dosage: UNK
  6. HYDROCODONE [Concomitant]
     Indication: ARTHRALGIA
     Dosage: UNK

REACTIONS (3)
  - CELLULITIS [None]
  - SKIN IRRITATION [None]
  - SWELLING [None]
